FAERS Safety Report 7910519-4 (Version None)
Quarter: 2011Q4

REPORT INFORMATION
  Report Type: 
  Country: None (occurrence: None)
  Receive Date: 20111111
  Receipt Date: 20111028
  Transmission Date: 20120403
  Serious: Yes (Other)
  Sender: FDA-Public Use
  Company Number: PHHY2011AU96175

PATIENT
  Age: 29 Year
  Sex: Male

DRUGS (17)
  1. VANCOMYCIN [Concomitant]
  2. MYCOPHENOLATE MOFETIL [Suspect]
     Indication: LUNG TRANSPLANT
  3. GANCICLOVIR [Concomitant]
  4. SEVELAMER [Concomitant]
  5. AZATHIOPRINE [Concomitant]
  6. PIPERACILLIN AND TAZOBACTAM [Concomitant]
  7. BASILIXIMAB [Suspect]
     Indication: RENAL TRANSPLANT
  8. METHYLPREDNISOLONE [Concomitant]
     Indication: IMMUNOSUPPRESSION
  9. CALCIUM [Concomitant]
  10. MOXIFLOXACIN [Concomitant]
  11. AMIKACIN [Concomitant]
  12. CREON [Concomitant]
  13. MYCOPHENOLATE MOFETIL [Suspect]
     Indication: RENAL TRANSPLANT
  14. BASILIXIMAB [Suspect]
     Indication: LUNG TRANSPLANT
  15. TACROLIMUS [Concomitant]
  16. COTRIM [Concomitant]
  17. VORICONAZOLE [Concomitant]

REACTIONS (20)
  - HYPEROXALURIA [None]
  - EMOTIONAL DISTRESS [None]
  - ANGER [None]
  - OLIGURIA [None]
  - POST PROCEDURAL COMPLICATION [None]
  - DIABETES MELLITUS [None]
  - COAGULOPATHY [None]
  - KIDNEY FIBROSIS [None]
  - RENAL FAILURE ACUTE [None]
  - LYMPHOCYTIC INFILTRATION [None]
  - NEPHROPATHY [None]
  - RENAL ISCHAEMIA [None]
  - NECROSIS [None]
  - CONTINUOUS HAEMODIAFILTRATION [None]
  - RENAL TUBULAR NECROSIS [None]
  - ANASTOMOTIC HAEMORRHAGE [None]
  - RENAL TUBULAR DISORDER [None]
  - RENAL TUBULAR ATROPHY [None]
  - HYPOTENSION [None]
  - DIARRHOEA [None]
